FAERS Safety Report 8957692 (Version 2)
Quarter: 2012Q4

REPORT INFORMATION
  Report Type: Report from Study
  Country: CA (occurrence: CA)
  Receive Date: 20121211
  Receipt Date: 20121219
  Transmission Date: 20130627
  Serious: Yes (Other)
  Sender: FDA-Public Use
  Company Number: CA-ABBOTT-12P-028-1018084-00

PATIENT
  Age: 27 None
  Sex: Female
  Weight: 116.68 kg

DRUGS (2)
  1. HUMIRA PEN [Suspect]
     Indication: CROHN^S DISEASE
     Dosage: Unknown
     Route: 058
     Dates: start: 20110624
  2. HUMIRA PEN [Suspect]

REACTIONS (3)
  - Small intestinal obstruction [Recovered/Resolved]
  - Treatment failure [Unknown]
  - Vision blurred [Unknown]
